FAERS Safety Report 13855455 (Version 1)
Quarter: 2017Q3

REPORT INFORMATION
  Report Type: Spontaneous
  Country: GB (occurrence: GB)
  Receive Date: 20170810
  Receipt Date: 20170810
  Transmission Date: 20171127
  Serious: Yes (Other)
  Sender: FDA-Public Use
  Company Number: GB-SA-2017SA141039

PATIENT
  Sex: Female

DRUGS (2)
  1. DULCOEASE [Suspect]
     Active Substance: DOCUSATE SODIUM
     Indication: DIVERTICULITIS
     Route: 065
  2. DULCOLAX NOS [Suspect]
     Active Substance: BISACODYL OR DOCUSATE SODIUM
     Indication: DIVERTICULITIS
     Route: 065

REACTIONS (2)
  - Intentional product misuse [Unknown]
  - Drug dependence [Unknown]
